FAERS Safety Report 6563795-7 (Version None)
Quarter: 2010Q1

REPORT INFORMATION
  Report Type: 
  Country: None (occurrence: None)
  Receive Date: 20100130
  Receipt Date: 20091230
  Transmission Date: 20100710
  Serious: No
  Sender: FDA-Public Use
  Company Number: US-ABBOTT-10P-163-0617680-00

PATIENT
  Sex: Female
  Weight: 90.8 kg

DRUGS (2)
  1. HUMIRA [Suspect]
     Indication: PSORIATIC ARTHROPATHY
     Dates: start: 20091001
  2. SOLIFENACIN SUCCINATE [Concomitant]
     Indication: HYPERTONIC BLADDER
     Dates: start: 20080101

REACTIONS (2)
  - DYSPHONIA [None]
  - SINUSITIS [None]
